FAERS Safety Report 5255155-6 (Version None)
Quarter: 2007Q1

REPORT INFORMATION
  Report Type: 
  Country: None (occurrence: None)
  Receive Date: 20070305
  Receipt Date: 20070223
  Transmission Date: 20070707
  Serious: Yes (Disabling)
  Sender: FDA-Public Use
  Company Number: DE-AVENTIS-200710519DE

PATIENT
  Age: 53 Year
  Sex: Male

DRUGS (2)
  1. AMARYL [Suspect]
     Route: 048
     Dates: start: 20070206
  2. METFORMIN [Concomitant]
     Dosage: DOSE: NOT REPORTED
     Route: 048
     Dates: end: 20070205

REACTIONS (1)
  - MYOPIA [None]
